FAERS Safety Report 17805956 (Version 2)
Quarter: 2020Q2

REPORT INFORMATION
  Report Type: Spontaneous
  Country: US (occurrence: US)
  Receive Date: 20200520
  Receipt Date: 20200626
  Transmission Date: 20200714
  Serious: No
  Sender: FDA-Public Use
  Company Number: US-TEVA-2020-US-1236762

PATIENT
  Sex: Male

DRUGS (3)
  1. GLIPIZIDE 5 MG TEVA [Suspect]
     Active Substance: GLIPIZIDE
     Indication: DIABETES MELLITUS MANAGEMENT
     Dosage: SCORED/WATSON/460
     Route: 065
  2. GLIPIZIDE 5 MG TEVA [Suspect]
     Active Substance: GLIPIZIDE
  3. GLYBUR [Concomitant]
     Indication: DIABETES MELLITUS MANAGEMENT
     Route: 065

REACTIONS (1)
  - Drug ineffective [Unknown]
